FAERS Safety Report 13916337 (Version 3)
Quarter: 2017Q4

REPORT INFORMATION
  Report Type: Spontaneous
  Country: US (occurrence: US)
  Receive Date: 20170829
  Receipt Date: 20171107
  Transmission Date: 20180320
  Serious: Yes (Life-Threatening, Hospitalization, Other)
  Sender: FDA-Public Use
  Company Number: US-GLENMARK PHARMACEUTICALS-2017GMK028578

PATIENT
  Age: 59 Year
  Sex: Female

DRUGS (2)
  1. LINEZOLID. [Suspect]
     Active Substance: LINEZOLID
     Indication: STAPHYLOCOCCAL INFECTION
     Dosage: UNK
     Route: 065
  2. WARFARIN [Suspect]
     Active Substance: WARFARIN
     Indication: EMBOLISM VENOUS
     Dosage: UNK
     Route: 065

REACTIONS (8)
  - Thrombocytopenia [Recovering/Resolving]
  - Drug interaction [Unknown]
  - Septic shock [Recovering/Resolving]
  - Hypoglycaemia [Recovering/Resolving]
  - Lactic acidosis [Recovering/Resolving]
  - Anticoagulation drug level above therapeutic [Recovering/Resolving]
  - Toxicity to various agents [Recovering/Resolving]
  - Transaminases abnormal [Recovering/Resolving]
